FAERS Safety Report 9358111 (Version 5)
Quarter: 2013Q3

REPORT INFORMATION
  Report Type: Spontaneous
  Country: US (occurrence: US)
  Receive Date: 20130620
  Receipt Date: 20130822
  Transmission Date: 20140515
  Serious: Yes (Hospitalization)
  Sender: FDA-Public Use
  Company Number: US-JNJFOC-20130607620

PATIENT
  Age: 53 Year
  Sex: Male
  Weight: 82.1 kg

DRUGS (17)
  1. XARELTO [Suspect]
     Indication: PULMONARY EMBOLISM
     Route: 048
     Dates: start: 20130514, end: 201306
  2. ALDACTONE [Concomitant]
     Dosage: MORNING
     Route: 048
  3. AMITIZA (LUBIPROSTONE) [Concomitant]
     Route: 048
  4. ANTIVERT [Concomitant]
     Route: 048
  5. DEXILANT [Concomitant]
     Route: 048
  6. DIGOXIN [Concomitant]
     Dosage: EVENING
     Route: 048
  7. KLOR-CON M10 ER [Concomitant]
  8. LASIX [Concomitant]
     Route: 048
  9. LISINOPRIL [Concomitant]
     Dosage: EVENING
     Route: 048
  10. NITROSTAT [Concomitant]
     Route: 060
  11. PERCOCET [Concomitant]
     Route: 048
  12. PLAVIX [Concomitant]
     Route: 048
  13. PROAIR HFA [Concomitant]
     Dosage: 1-2 PUFFS, EVERY 4 TO 6 HOURS AS NEEDED
     Route: 055
  14. TOPROL XL [Concomitant]
     Dosage: MORNING
     Route: 048
  15. VALIUM [Concomitant]
     Dosage: AT BEDTIME
     Route: 048
  16. ZAROXOLYN [Concomitant]
     Dosage: MORNING
     Route: 048
  17. ZOCOR [Concomitant]
     Dosage: BEDTIME
     Route: 048

REACTIONS (2)
  - Hepatic failure [Recovering/Resolving]
  - Cardiac failure congestive [Not Recovered/Not Resolved]
